FAERS Safety Report 4993454-3 (Version None)
Quarter: 2006Q2

REPORT INFORMATION
  Report Type: 
  Country: None (occurrence: None)
  Receive Date: 20060504
  Receipt Date: 20060504
  Transmission Date: 20061013
  Serious: Yes (Life-Threatening)
  Sender: FDA-Public Use
  Company Number: None

PATIENT
  Sex: Male
  Weight: 45 kg

DRUGS (2)
  1. CONCERTA [Suspect]
     Indication: ABNORMAL BEHAVIOUR
     Dosage: 72 MG QDAY PO
     Route: 048
  2. CONCERTA [Suspect]
     Indication: ATTENTION DEFICIT/HYPERACTIVITY DISORDER
     Dosage: 72 MG QDAY PO
     Route: 048

REACTIONS (3)
  - CARDIO-RESPIRATORY ARREST [None]
  - MEMORY IMPAIRMENT [None]
  - VENTRICULAR FIBRILLATION [None]
